FAERS Safety Report 10247632 (Version 2)
Quarter: 2014Q3

REPORT INFORMATION
  Report Type: Spontaneous
  Country: FR (occurrence: FR)
  Receive Date: 20140619
  Receipt Date: 20140805
  Transmission Date: 20150326
  Serious: Yes (Hospitalization)
  Sender: FDA-Public Use
  Company Number: FR-MERCK-1406FRA008869

PATIENT
  Age: 63 Year
  Sex: Female

DRUGS (4)
  1. CEFACIDAL [Suspect]
     Active Substance: CEFAZOLIN SODIUM
     Dosage: UNK
     Route: 042
     Dates: start: 20140509, end: 20140510
  2. VISIPAQUE [Suspect]
     Active Substance: IODIXANOL
     Dosage: UNK
     Route: 042
     Dates: start: 20140509, end: 20140509
  3. AERIUS [Suspect]
     Active Substance: DESLORATADINE
     Dosage: UNK
     Route: 048
     Dates: start: 20140514, end: 20140520
  4. COUMADIN [Suspect]
     Active Substance: WARFARIN SODIUM
     Dosage: UNK
     Route: 048
     Dates: start: 20140514, end: 20140519

REACTIONS (4)
  - Postoperative fever [None]
  - Asthenia [None]
  - Rash maculo-papular [Recovered/Resolved]
  - Dyspnoea [None]

NARRATIVE: CASE EVENT DATE: 20140519
